FAERS Safety Report 21286096 (Version 1)
Quarter: 2022Q3

REPORT INFORMATION
  Report Type: Spontaneous
  Country: US (occurrence: None)
  Receive Date: 20220901
  Receipt Date: 20220901
  Transmission Date: 20221027
  Serious: Yes (Hospitalization)
  Sender: FDA-Public Use
  Company Number: None

PATIENT
  Age: 76 Year
  Sex: Female

DRUGS (1)
  1. ORENCIA [Suspect]
     Active Substance: ABATACEPT
     Indication: Rheumatoid arthritis
     Dosage: FREQUENCY: OTHER
     Route: 058
     Dates: start: 202203

REACTIONS (3)
  - Therapy interrupted [None]
  - Wound infection [None]
  - Localised infection [None]

NARRATIVE: CASE EVENT DATE: 20220801
